FAERS Safety Report 6417188-3 (Version None)
Quarter: 2009Q4

REPORT INFORMATION
  Report Type: 
  Country: None (occurrence: None)
  Receive Date: 20091027
  Receipt Date: 20091027
  Transmission Date: 20100525
  Serious: Yes (Other)
  Sender: FDA-Public Use
  Company Number: None

PATIENT
  Age: 11 Year
  Sex: Male
  Weight: 48 kg

DRUGS (1)
  1. DIVALPROEX SODIUM [Suspect]
     Dosage: 1 TAB BID
     Dates: start: 20060101

REACTIONS (2)
  - CONVULSION [None]
  - PRODUCT SUBSTITUTION ISSUE [None]
